FAERS Safety Report 4972636-0 (Version None)
Quarter: 2006Q1

REPORT INFORMATION
  Report Type: 
  Country: None (occurrence: None)
  Receive Date: 20060216
  Receipt Date: 20050121
  Transmission Date: 20060701
  Serious: Yes (Hospitalization)
  Sender: FDA-Public Use
  Company Number: 2005IM000034

PATIENT
  Age: 76 Year
  Sex: Male
  Weight: 90.2658 kg

DRUGS (18)
  1. BLINDED THERAPY (INTERFERON GAMMA-1B) [Suspect]
     Indication: IDIOPATHIC PULMONARY FIBROSIS
     Dosage: SEE IMAGE
     Route: 058
     Dates: start: 20040928, end: 20041127
  2. BLINDED THERAPY (INTERFERON GAMMA-1B) [Suspect]
     Indication: IDIOPATHIC PULMONARY FIBROSIS
     Dosage: SEE IMAGE
     Route: 058
     Dates: start: 20041201, end: 20050118
  3. BLINDED THERAPY (INTERFERON GAMMA-1B) [Suspect]
     Indication: IDIOPATHIC PULMONARY FIBROSIS
     Dosage: SEE IMAGE
     Route: 058
     Dates: start: 20050205, end: 20050606
  4. DIGOXIN [Concomitant]
  5. LISINOPRIL [Concomitant]
  6. HYDROCHLOROTHIAZIDE [Concomitant]
  7. EZETIMIBE [Concomitant]
  8. LEVOTHYROXINE SODIUM [Concomitant]
  9. FLUTICASONE PROPIONATE [Concomitant]
  10. TAMSULOSIN HCL [Concomitant]
  11. CETIRIZINE [Concomitant]
  12. TOLTERODINE [Concomitant]
  13. PREDNISONE TAB [Concomitant]
  14. ASPIRIN [Concomitant]
  15. ACTEAMINOPHEN [Concomitant]
  16. IBUPROFEN [Concomitant]
  17. LANSOPRAZOLE [Concomitant]
  18. TEMAZEPAM [Concomitant]

REACTIONS (1)
  - ASTHENIA [None]
